FAERS Safety Report 6199015-5 (Version None)
Quarter: 2009Q2

REPORT INFORMATION
  Report Type: 
  Country: None (occurrence: None)
  Receive Date: 20090520
  Receipt Date: 20090520
  Transmission Date: 20091009
  Serious: Yes (Death)
  Sender: FDA-Public Use
  Company Number: None

PATIENT

DRUGS (2)
  1. SERTRALINE [Suspect]
     Indication: ANXIETY
     Dosage: ONE TABLET ONCE A DAY PO
     Route: 048
     Dates: start: 20080221, end: 20080223
  2. SERTRALINE [Suspect]
     Indication: DEPRESSION
     Dosage: ONE TABLET ONCE A DAY PO
     Route: 048
     Dates: start: 20080221, end: 20080223

REACTIONS (1)
  - SUICIDAL IDEATION [None]
